FAERS Safety Report 16799333 (Version 1)
Quarter: 2019Q3

REPORT INFORMATION
  Report Type: Report from Study
  Country: GB (occurrence: GB)
  Receive Date: 20190912
  Receipt Date: 20190912
  Transmission Date: 20191005
  Serious: Yes (Hospitalization, Other)
  Sender: FDA-Public Use
  Company Number: GB-PFIZER INC-2019388684

PATIENT
  Age: 12 Year
  Sex: Male
  Weight: 35 kg

DRUGS (8)
  1. STIRIPENTOL [Interacting]
     Active Substance: STIRIPENTOL
     Indication: EPILEPSY
     Dosage: 500 MG, 2X/DAY
  2. SODIUM VALPROATE [Concomitant]
     Active Substance: VALPROATE SODIUM
     Indication: EPILEPSY
     Dosage: 600 MG, DAILY (200 MG AM AND 400 MG PM)
  3. CANNABIS SATIVA [Interacting]
     Active Substance: CANNABIS SATIVA SUBSP. SATIVA FLOWERING TOP
     Indication: SEVERE MYOCLONIC EPILEPSY OF INFANCY
     Dosage: 180 MG, 2X/DAY (10.3 MG/KG)
     Dates: start: 20190508
  4. PHENYTOIN. [Suspect]
     Active Substance: PHENYTOIN
     Indication: SEIZURE PROPHYLAXIS
     Dosage: UNK
  5. CLOBAZAM. [Interacting]
     Active Substance: CLOBAZAM
     Indication: EPILEPSY
     Dosage: 10 MG, 1X/DAY (EVERY NIGHT)
  6. ACYCLOVIR [ACICLOVIR] [Concomitant]
     Active Substance: ACYCLOVIR
     Dosage: UNK
     Route: 042
  7. DIAZEPAM. [Interacting]
     Active Substance: DIAZEPAM
     Indication: EPILEPSY
     Dosage: 10 MG, SINGLE
     Route: 054
     Dates: start: 20190706, end: 20190706
  8. DIAZEPAM. [Interacting]
     Active Substance: DIAZEPAM
     Dosage: 10 MG, AS NEEDED
     Route: 054

REACTIONS (4)
  - Coma scale abnormal [Unknown]
  - Seizure [Recovered/Resolved]
  - Somnolence [Recovered/Resolved]
  - Drug interaction [Recovered/Resolved]

NARRATIVE: CASE EVENT DATE: 201907
